FAERS Safety Report 22529370 (Version 1)
Quarter: 2023Q2

REPORT INFORMATION
  Report Type: Spontaneous
  Country: US (occurrence: US)
  Receive Date: 20230607
  Receipt Date: 20230607
  Transmission Date: 20230721
  Serious: No
  Sender: FDA-Public Use
  Company Number: US-ELI_LILLY_AND_COMPANY-US202306001632

PATIENT

DRUGS (1)
  1. EMGALITY [Suspect]
     Active Substance: GALCANEZUMAB-GNLM
     Indication: Product used for unknown indication
     Dosage: UNK UNK, OTHER (LOADING DOSE)
     Route: 065
     Dates: start: 201812

REACTIONS (7)
  - Peripheral swelling [Unknown]
  - Abdominal distension [Unknown]
  - Fatigue [Unknown]
  - Localised infection [Unknown]
  - Constipation [Unknown]
  - Rash pruritic [Unknown]
  - Urticaria [Unknown]

NARRATIVE: CASE EVENT DATE: 20181201
